FAERS Safety Report 9194357 (Version 2)
Quarter: 2013Q1

REPORT INFORMATION
  Report Type: Spontaneous
  Country: TW (occurrence: TW)
  Receive Date: 20130327
  Receipt Date: 20130329
  Transmission Date: 20140127
  Serious: Yes (Other)
  Sender: FDA-Public Use
  Company Number: TW-B.I. PHARMACEUTICALS,INC./RIDGEFIELD-2013-BI-07489RF

PATIENT
  Age: 87 Year
  Sex: Female

DRUGS (3)
  1. PRADAXA [Suspect]
     Indication: CEREBROVASCULAR ACCIDENT PROPHYLAXIS
     Dosage: 220 MG
     Route: 048
     Dates: start: 20130205, end: 20130318
  2. PRADAXA [Suspect]
     Indication: ATRIAL FIBRILLATION
  3. DIURETICS [Concomitant]
     Indication: CARDIAC FAILURE

REACTIONS (2)
  - Renal failure acute [Unknown]
  - Gingival bleeding [Recovered/Resolved]
